FAERS Safety Report 21630683 (Version 1)
Quarter: 2022Q4

REPORT INFORMATION
  Report Type: Report from Study
  Country: US (occurrence: US)
  Receive Date: 20221123
  Receipt Date: 20221123
  Transmission Date: 20230113
  Serious: Yes (Hospitalization, Other)
  Sender: FDA-Public Use
  Company Number: US-BRISTOL-MYERS SQUIBB COMPANY-2022-135277

PATIENT
  Sex: Male
  Weight: 89.3 kg

DRUGS (28)
  1. POMALIDOMIDE [Suspect]
     Active Substance: POMALIDOMIDE
     Indication: Plasma cell myeloma
     Dosage: DAYS 1-21?DRUG INTERRUPTED
     Route: 048
     Dates: start: 20150408
  2. RICOLINOSTAT [Suspect]
     Active Substance: RICOLINOSTAT
     Indication: Plasma cell myeloma
     Dosage: DAYS 1-21?DRUG INTERRUPTED
     Route: 048
     Dates: start: 20150408
  3. DEXAMETHASONE [Suspect]
     Active Substance: DEXAMETHASONE
     Indication: Plasma cell myeloma
     Dosage: DAYS 1,8,15 AND 22?THE MOST RECENT DOSE RECEIVED ON 06-JUL-2022
     Route: 048
     Dates: start: 20150408
  4. ALLOPURINOL [Concomitant]
     Active Substance: ALLOPURINOL
     Indication: Gout
     Route: 048
     Dates: start: 20080908
  5. ASPIRIN [Concomitant]
     Active Substance: ASPIRIN
     Indication: Thrombosis prophylaxis
     Dosage: QD
     Route: 048
     Dates: start: 20090127
  6. FOLIC ACID [Concomitant]
     Active Substance: FOLIC ACID
     Indication: Nutritional supplementation
     Dosage: QD
     Route: 048
     Dates: start: 20080908
  7. OMEPRAZOLE [Concomitant]
     Active Substance: OMEPRAZOLE
     Indication: Gastrointestinal disorder prophylaxis
     Dosage: QD
     Route: 048
     Dates: start: 20080908
  8. PLAVIX [Concomitant]
     Active Substance: CLOPIDOGREL BISULFATE
     Indication: Thrombosis prophylaxis
     Dosage: QD
     Route: 048
     Dates: start: 20150218
  9. HYDROCHLOROTHIAZIDE\VALSARTAN [Concomitant]
     Active Substance: HYDROCHLOROTHIAZIDE\VALSARTAN
     Indication: Hypertension
     Dosage: 12.5/320 MG, EVERY EVENING
     Route: 048
     Dates: start: 20150218
  10. VITAMIN B12 [Concomitant]
     Active Substance: CYANOCOBALAMIN
     Indication: Nutritional supplementation
     Dosage: QD
     Route: 048
     Dates: start: 20150218
  11. ZOLPIDEM TARTRATE [Concomitant]
     Active Substance: ZOLPIDEM TARTRATE
     Indication: Insomnia
     Dosage: DAILY AT BED TIME
     Route: 048
     Dates: start: 20150218
  12. BACTRIM [Concomitant]
     Active Substance: SULFAMETHOXAZOLE\TRIMETHOPRIM
     Indication: Prostatitis
     Dosage: UNK, PRN
     Route: 048
     Dates: start: 200809
  13. COMPAZINE [Concomitant]
     Active Substance: PROCHLORPERAZINE MALEATE
     Indication: Nausea
     Dosage: UNK MG,
     Route: 048
     Dates: start: 201508
  14. VESICARE [Concomitant]
     Active Substance: SOLIFENACIN SUCCINATE
     Indication: Prostatitis
     Dosage: QD
     Route: 048
     Dates: start: 20160302
  15. CARVEDILOL [Concomitant]
     Active Substance: CARVEDILOL
     Indication: Hypertension
     Dosage: QD
     Route: 048
     Dates: start: 20151029
  16. MAGNESIUM [Concomitant]
     Active Substance: MAGNESIUM
     Indication: Muscle spasms
     Dosage: QD
     Route: 048
     Dates: start: 201601
  17. METOPROLOL SUCCINATE [Concomitant]
     Active Substance: METOPROLOL SUCCINATE
     Indication: Prophylaxis
     Dosage: QD
     Route: 048
     Dates: start: 20180910
  18. APIXABAN [Concomitant]
     Active Substance: APIXABAN
     Indication: Thrombosis prophylaxis
     Dosage: BID
     Route: 048
     Dates: start: 20180209
  19. FUROSEMIDE [Concomitant]
     Active Substance: FUROSEMIDE
     Indication: Atrial fibrillation
     Dosage: QD
     Route: 048
     Dates: start: 20180718
  20. ACETAMINOPHEN [Concomitant]
     Active Substance: ACETAMINOPHEN
     Indication: Arthralgia
     Dosage: Q6H, PRN
     Route: 048
     Dates: start: 20200315
  21. AMLODIPINE [Concomitant]
     Active Substance: AMLODIPINE BESYLATE
     Indication: Hypertension
     Dosage: BID
     Route: 048
     Dates: start: 20181031
  22. ATORVASTATIN [Concomitant]
     Active Substance: ATORVASTATIN
     Indication: Hypercholesterolaemia
     Dosage: QD
     Route: 048
     Dates: start: 20180806
  23. BUPROPION [Concomitant]
     Active Substance: BUPROPION
     Indication: Depression
     Dosage: QD
     Route: 048
     Dates: start: 20180523
  24. CHOLECALCIFEROL [Concomitant]
     Active Substance: CHOLECALCIFEROL
     Indication: Nutritional supplementation
     Dosage: QD
     Route: 048
     Dates: start: 20200304
  25. MELATONIN [Concomitant]
     Active Substance: MELATONIN
     Indication: Insomnia
     Dosage: QD
     Route: 048
     Dates: start: 20190424
  26. OLMESARTAN [Concomitant]
     Active Substance: OLMESARTAN
     Indication: Hypertension
     Dosage: QD
     Route: 048
     Dates: start: 20190829
  27. SENNA [Concomitant]
     Active Substance: SENNA LEAF\SENNOSIDES\SENNOSIDES A AND B
     Indication: Constipation
     Dosage: BID
     Route: 048
     Dates: start: 20200310
  28. DOFETILIDE [Concomitant]
     Active Substance: DOFETILIDE
     Indication: Atrial fibrillation
     Dosage: BID
     Route: 048
     Dates: start: 20201014

REACTIONS (1)
  - Pneumonia aspiration [Recovered/Resolved]

NARRATIVE: CASE EVENT DATE: 20221028
